FAERS Safety Report 5883864-4 (Version None)
Quarter: 2008Q3

REPORT INFORMATION
  Report Type: 
  Country: None (occurrence: None)
  Receive Date: 20080915
  Receipt Date: 20080904
  Transmission Date: 20090109
  Serious: Yes (Hospitalization)
  Sender: FDA-Public Use
  Company Number: A0747354A

PATIENT
  Age: 53 Year
  Sex: Female
  Weight: 145.9 kg

DRUGS (10)
  1. AVANDIA [Suspect]
     Dosage: 4MG PER DAY
     Route: 048
     Dates: start: 20020101, end: 20070101
  2. SINGULAIR [Concomitant]
  3. LIPITOR [Concomitant]
     Dates: start: 20040101, end: 20070101
  4. CRESTOR [Concomitant]
     Dates: start: 20060101, end: 20070101
  5. ATENOLOL [Concomitant]
     Dates: start: 19880101
  6. BYETTA [Concomitant]
     Dates: start: 20050101, end: 20060101
  7. GLUCOTROL [Concomitant]
     Dates: start: 19960101, end: 20030101
  8. GLARGINE [Concomitant]
     Dates: start: 20030101
  9. METFORMIN HCL [Concomitant]
     Dates: start: 19960101, end: 20030101
  10. GLUCOPHAGE [Concomitant]
     Dates: start: 19960101, end: 20030101

REACTIONS (1)
  - MYOCARDIAL ISCHAEMIA [None]
